FAERS Safety Report 19957768 (Version 2)
Quarter: 2021Q4

REPORT INFORMATION
  Report Type: Spontaneous
  Country: US (occurrence: US)
  Receive Date: 20211015
  Receipt Date: 20211029
  Transmission Date: 20220303
  Serious: Yes (Other)
  Sender: FDA-Public Use
  Company Number: US-BLUEPRINT MEDICINES CORPORATION-SP-US-2021-001841

PATIENT
  Age: 57 Year
  Sex: Male

DRUGS (1)
  1. AYVAKIT [Suspect]
     Active Substance: AVAPRITINIB
     Indication: Gastrointestinal stromal tumour
     Route: 048
     Dates: start: 20191015

REACTIONS (14)
  - Procedural complication [Unknown]
  - Flatulence [Unknown]
  - Retching [Unknown]
  - Product taste abnormal [Unknown]
  - Nausea [Unknown]
  - Vomiting [Unknown]
  - Diarrhoea [Unknown]
  - Tooth disorder [Unknown]
  - Nodule [Unknown]
  - Inguinal hernia [Unknown]
  - Cough [Unknown]
  - Taste disorder [Unknown]
  - Fatigue [Unknown]
  - Cardiac disorder [Unknown]
